FAERS Safety Report 4555572-3 (Version None)
Quarter: 2005Q1

REPORT INFORMATION
  Report Type: 
  Country: None (occurrence: None)
  Receive Date: 20050118
  Receipt Date: 20050118
  Transmission Date: 20050727
  Serious: Yes (Other)
  Sender: FDA-Public Use
  Company Number: None

PATIENT
  Age: 60 Year
  Sex: Female
  Weight: 50.3493 kg

DRUGS (1)
  1. AZITHROMYCIN [Suspect]
     Indication: SEPSIS
     Dosage: 500 MG QD IV
     Route: 042
     Dates: start: 20050106

REACTIONS (3)
  - ASTHENIA [None]
  - CHEST DISCOMFORT [None]
  - INFUSION RELATED REACTION [None]
